FAERS Safety Report 5122140-4 (Version None)
Quarter: 2006Q4

REPORT INFORMATION
  Report Type: 
  Country: None (occurrence: None)
  Receive Date: 20061004
  Receipt Date: 20061004
  Transmission Date: 20070319
  Serious: Yes (Other)
  Sender: FDA-Public Use
  Company Number: None

PATIENT
  Age: 44 Year
  Sex: Female

DRUGS (3)
  1. LEVEMIR [Suspect]
     Indication: DIABETES MELLITUS NON-INSULIN-DEPENDENT
     Dosage: SUBCUTANEOUS; 50.0
     Route: 058
     Dates: start: 20060712, end: 20060720
  2. METFORMIN HCL [Concomitant]
  3. . [Concomitant]

REACTIONS (1)
  - BLOOD GLUCOSE INCREASED [None]
